FAERS Safety Report 5511639-4 (Version None)
Quarter: 2007Q4

REPORT INFORMATION
  Report Type: 
  Country: None (occurrence: None)
  Receive Date: 20071109
  Receipt Date: 20071031
  Transmission Date: 20080405
  Serious: Yes (Life-Threatening, Hospitalization, Other)
  Sender: FDA-Public Use
  Company Number: GB-PFIZER INC-2007087752

PATIENT
  Age: 53 Year
  Sex: Male

DRUGS (8)
  1. LIPITOR [Interacting]
     Route: 048
  2. INFLUENZA VACCINE [Interacting]
  3. WARFARIN SODIUM [Suspect]
  4. CIPROFLOXACIN [Concomitant]
     Route: 048
  5. COZAAR [Concomitant]
     Route: 048
  6. OMEPRAZOLE [Concomitant]
     Route: 048
  7. TAMSULOSIN HCL [Concomitant]
     Route: 048
  8. CEFIXIME [Concomitant]
     Route: 048

REACTIONS (5)
  - BACK PAIN [None]
  - DRUG INTERACTION [None]
  - PROTHROMBIN TIME SHORTENED [None]
  - RENAL HAEMORRHAGE [None]
  - RENAL PAIN [None]
